FAERS Safety Report 9221060 (Version 4)
Quarter: 2013Q2

REPORT INFORMATION
  Report Type: Spontaneous
  Country: US (occurrence: US)
  Receive Date: 20130409
  Receipt Date: 20130513
  Transmission Date: 20140414
  Serious: Yes (Hospitalization, Other)
  Sender: FDA-Public Use
  Company Number: US-BAXTER-2013BAX012608

PATIENT
  Age: 55 Year
  Sex: Male

DRUGS (4)
  1. DIANEAL LOW CALCIUM [Suspect]
     Indication: PERITONEAL DIALYSIS
     Route: 033
     Dates: start: 201212
  2. DIANEAL LOW CALCIUM [Suspect]
     Route: 033
  3. DIANEAL LOW CALCIUM [Suspect]
     Indication: PERITONEAL DIALYSIS
     Route: 033
  4. DIANEAL LOW CALCIUM (ULTRABAG) [Suspect]
     Indication: PERITONEAL DIALYSIS
     Route: 033
     Dates: start: 201212

REACTIONS (7)
  - Cardiac disorder [Recovering/Resolving]
  - Skin ulcer [Recovering/Resolving]
  - Sepsis [Recovering/Resolving]
  - Peripheral arterial occlusive disease [Recovering/Resolving]
  - Poor peripheral circulation [Recovering/Resolving]
  - Fall [Not Recovered/Not Resolved]
  - Post procedural complication [Not Recovered/Not Resolved]
